FAERS Safety Report 16702138 (Version 1)
Quarter: 2019Q3

REPORT INFORMATION
  Report Type: Spontaneous
  Country: CA (occurrence: CA)
  Receive Date: 20190813
  Receipt Date: 20190813
  Transmission Date: 20191004
  Serious: Yes (Hospitalization, Disabling, Other)
  Sender: FDA-Public Use
  Company Number: None

PATIENT
  Age: 23 Year
  Sex: Female

DRUGS (1)
  1. PREDNISONE. [Suspect]
     Active Substance: PREDNISONE
     Indication: ECZEMA
     Route: 048

REACTIONS (11)
  - Eczema weeping [None]
  - Skin abrasion [None]
  - Erythema [None]
  - Application site reaction [None]
  - Skin warm [None]
  - Pyrexia [None]
  - Steroid withdrawal syndrome [None]
  - Skin exfoliation [None]
  - Rash pruritic [None]
  - Swelling of eyelid [None]
  - Urticaria [None]

NARRATIVE: CASE EVENT DATE: 20190101
